FAERS Safety Report 8123627-2 (Version None)
Quarter: 2012Q1

REPORT INFORMATION
  Report Type: 
  Country: None (occurrence: None)
  Receive Date: 20120208
  Receipt Date: 20120203
  Transmission Date: 20120608
  Serious: Yes (Hospitalization)
  Sender: FDA-Public Use
  Company Number: PHEH2012US003151

PATIENT
  Sex: Female

DRUGS (2)
  1. RED BLOOD CELLS, CONCENTRATED [Concomitant]
  2. EXJADE [Suspect]
     Indication: HAEMOCHROMATOSIS
     Dosage: 250 MG, TID
     Route: 048
     Dates: start: 20120121

REACTIONS (2)
  - BODY TEMPERATURE INCREASED [None]
  - HAEMOGLOBIN DECREASED [None]
